FAERS Safety Report 5483411-5 (Version None)
Quarter: 2007Q4

REPORT INFORMATION
  Report Type: 
  Country: None (occurrence: None)
  Receive Date: 20071009
  Receipt Date: 20071001
  Transmission Date: 20080405
  Serious: Yes (Hospitalization)
  Sender: FDA-Public Use
  Company Number: 2007BI015895

PATIENT
  Age: 64 Year
  Sex: Male
  Weight: 63.5036 kg

DRUGS (1)
  1. AVONEX [Suspect]
     Indication: MULTIPLE SCLEROSIS
     Dosage: 30 UG;QW;IM
     Route: 030
     Dates: start: 20030602, end: 20070801

REACTIONS (4)
  - INJURY [None]
  - LACERATION [None]
  - NEPHROLITHIASIS [None]
  - ROAD TRAFFIC ACCIDENT [None]
